FAERS Safety Report 10071421 (Version 1)
Quarter: 2014Q2

REPORT INFORMATION
  Report Type: Spontaneous
  Country: US (occurrence: US)
  Receive Date: 20140410
  Receipt Date: 20140410
  Transmission Date: 20141212
  Serious: No
  Sender: FDA-Public Use
  Company Number: US-ENDO PHARMACEUTICALS INC.-PRIM20130001

PATIENT
  Sex: Male
  Weight: 78.54 kg

DRUGS (2)
  1. PRIMIDONE TABLETS 250MG [Suspect]
     Indication: CONVULSION
     Route: 048
     Dates: start: 201206, end: 201304
  2. PRIMIDONE TABLETS 250MG [Suspect]
     Route: 048
     Dates: start: 201304

REACTIONS (4)
  - Fall [Recovering/Resolving]
  - Cognitive disorder [Recovering/Resolving]
  - Hallucination [Recovering/Resolving]
  - Emotional disorder [Recovering/Resolving]
